FAERS Safety Report 8180275 (Version 9)
Quarter: 2013Q1

REPORT INFORMATION
  Report Type: Spontaneous
  Country: US (occurrence: US)
  Receive Date: 20111013
  Receipt Date: 20130225
  Transmission Date: 20140127
  Serious: Yes (Hospitalization, Other)
  Sender: FDA-Public Use
  Company Number: US-ASTRAZENECA-2011SE59958

PATIENT
  Age: 44 Year
  Sex: Female

DRUGS (35)
  1. PULMICORT FLEXHALER [Suspect]
     Dosage: 180 MCG TWO PUFFS TWICE A DAY
     Route: 055
  2. NEXIUM [Suspect]
     Indication: GASTROOESOPHAGEAL REFLUX DISEASE
     Route: 048
  3. PRILOSEC [Suspect]
     Indication: GASTROOESOPHAGEAL REFLUX DISEASE
     Route: 048
  4. SEROQUEL [Suspect]
     Route: 048
  5. ASPIRIN [Suspect]
     Route: 065
  6. METFORMIN [Suspect]
     Route: 048
  7. XOPENEX [Concomitant]
     Indication: DYSPNOEA
     Dosage: 12.5 MG/3 ML INHALE ONE PUFF AS DIRECTED THREE TIMES A DAY
     Route: 055
  8. XOPENEX [Concomitant]
     Indication: COUGH
     Dosage: 12.5 MG/3 ML INHALE ONE PUFF AS DIRECTED THREE TIMES A DAY
     Route: 055
  9. XOPENEX [Concomitant]
     Indication: WHEEZING
     Dosage: 12.5 MG/3 ML INHALE ONE PUFF AS DIRECTED THREE TIMES A DAY
     Route: 055
  10. XOPENEX [Concomitant]
     Indication: DYSPNOEA
     Dosage: 45 MCG/ACTUATION AEROSOL INHALER INHALE 2 PUFF TWO TIMES A DAY
     Route: 055
  11. XOPENEX [Concomitant]
     Indication: COUGH
     Dosage: 45 MCG/ACTUATION AEROSOL INHALER INHALE 2 PUFF TWO TIMES A DAY
     Route: 055
  12. XOPENEX [Concomitant]
     Indication: WHEEZING
     Dosage: 45 MCG/ACTUATION AEROSOL INHALER INHALE 2 PUFF TWO TIMES A DAY
     Route: 055
  13. MAALOX [Concomitant]
     Dosage: ONE IN AM AFTER PREDNISONE. ONE IN PM IF NEEDED
     Route: 048
  14. PREDNISONE [Concomitant]
     Route: 048
  15. QVAR [Concomitant]
     Dosage: INHALE 2 PUFFS TWO TIME A DAY
     Route: 055
  16. TESSALON [Concomitant]
     Route: 048
  17. VITAMIN D [Concomitant]
     Dosage: 1000 UNIT DAILY
     Route: 048
  18. CINNAMON [Concomitant]
     Route: 048
  19. CLEMASTINE [Concomitant]
     Dosage: 1.5 TABLET 2 TIMES A DAY PER HOME DOSING
     Route: 048
  20. CLONAZEPAM [Concomitant]
     Route: 048
  21. CODEINE [Concomitant]
     Dosage: AS NEEDED
     Route: 048
  22. HYDROCHLOROTHIAZIDE [Concomitant]
     Dosage: HALF TO 1 DAILY AS NEEDED
     Route: 048
  23. LEVSIN [Concomitant]
     Indication: PAIN
     Dosage: 1-2 TABLET EVERY 6 HOURS AS NEEDED, EVERY 4-6 HOURS PRN
     Route: 060
  24. ATROVENT [Concomitant]
     Dosage: 2 PUFFS 2 TIMES A DAY PM
     Route: 045
  25. MAGTAB [Concomitant]
     Route: 048
  26. DESENEX JOCK ITCH [Concomitant]
     Dosage: APPLY TO SKIN
     Route: 061
  27. MORPHIN [Concomitant]
     Indication: PAIN
     Dosage: 15 MG EVERY 6 TO 8 HOURS AS NEEDED
     Route: 048
  28. NORTRIPTYLINE [Concomitant]
     Route: 048
  29. MIRALAX [Concomitant]
     Dosage: 3350 17 GRAM/DOSE 1 TSF 2 TIMES A DAY AS NEEDED
     Route: 048
  30. SODIUM CHLORIDE NASI [Concomitant]
     Dosage: 1 SPRAY EVERY 8 HOURS
     Route: 045
  31. SPIRIVA WITH HANDIHALER [Concomitant]
     Dosage: INHALE 1 PUFF CAP W/INHALATION DEVICE DAILY
  32. TOPAMAX [Concomitant]
     Route: 048
  33. IRON [Concomitant]
     Route: 048
  34. MOMETASONE [Concomitant]
     Dosage: 2 PUFF INTO EACH NOSTRILS TWO TIMES A DAY
     Route: 045
  35. ZANTAC [Concomitant]

REACTIONS (22)
  - Aspiration [Unknown]
  - Hernia [Unknown]
  - Lung infection [Unknown]
  - Lung disorder [Unknown]
  - Polycystic ovaries [Unknown]
  - Multiple allergies [Unknown]
  - Bipolar disorder [Unknown]
  - Adverse event [Unknown]
  - Obesity [Unknown]
  - Drug intolerance [Unknown]
  - Asthma [Unknown]
  - Gastrooesophageal reflux disease [Unknown]
  - Drug hypersensitivity [Unknown]
  - Oedema [Unknown]
  - Abdominal discomfort [Unknown]
  - Insomnia [Unknown]
  - Headache [Unknown]
  - Cough [Unknown]
  - Migraine [Unknown]
  - Malaise [Unknown]
  - Intentional drug misuse [Unknown]
  - Drug dose omission [Unknown]
